FAERS Safety Report 16158538 (Version 1)
Quarter: 2019Q2

REPORT INFORMATION
  Report Type: Spontaneous
  Country: US (occurrence: US)
  Receive Date: 20190403
  Receipt Date: 20190403
  Transmission Date: 20190711
  Serious: Yes (Other)
  Sender: FDA-Public Use
  Company Number: None

PATIENT
  Age: 43 Year
  Sex: Female
  Weight: 79.02 kg

DRUGS (9)
  1. MVI [Concomitant]
     Active Substance: VITAMINS
     Dates: start: 20180330
  2. SULFAMETHOXAZOLE/TMP 800/160 [Concomitant]
     Dates: start: 20181102
  3. VITAMIN D3 2000 UNIT [Concomitant]
     Dates: start: 20170208
  4. URSODIOL 300MG [Concomitant]
     Dates: start: 20180330
  5. CALCIUM CARB CHEWABLE 500MG (200 CA) [Concomitant]
     Dates: start: 20180330
  6. NPLATE [Suspect]
     Active Substance: ROMIPLOSTIM
     Indication: THROMBOCYTOPENIA
     Dosage: ?          OTHER FREQUENCY:Q7D;?
     Route: 058
     Dates: start: 20170324
  7. LAMOTRIGINE 100MG [Concomitant]
     Active Substance: LAMOTRIGINE
     Dates: start: 20170208
  8. GABAPENTIN 300MG [Concomitant]
     Active Substance: GABAPENTIN
     Dates: start: 20170623
  9. METFORMIN [Concomitant]
     Active Substance: METFORMIN HYDROCHLORIDE
     Dates: start: 20170208

REACTIONS (1)
  - Epistaxis [None]

NARRATIVE: CASE EVENT DATE: 20190325
